FAERS Safety Report 9198126 (Version 1)
Quarter: 2013Q1

REPORT INFORMATION
  Report Type: Spontaneous
  Country: CA (occurrence: CA)
  Receive Date: 20130329
  Receipt Date: 20130329
  Transmission Date: 20140127
  Serious: Yes (Hospitalization)
  Sender: FDA-Public Use
  Company Number: CA-ELI_LILLY_AND_COMPANY-CA201303007325

PATIENT
  Age: 20 Year
  Sex: Female

DRUGS (4)
  1. CYMBALTA [Suspect]
     Indication: DEPRESSION
     Dosage: 90 MG, UNKNOWN
  2. CYMBALTA [Suspect]
     Dosage: 120 MG, UNK
  3. ZYPREXA [Concomitant]
     Dosage: 2.5 MG, UNKNOWN
  4. ABILIFY [Concomitant]
     Dosage: 7.5 MG, UNKNOWN

REACTIONS (4)
  - Rhabdomyolysis [Unknown]
  - Anxiety [Unknown]
  - Hypomania [Unknown]
  - Mania [Unknown]
